FAERS Safety Report 6543263-9 (Version None)
Quarter: 2010Q1

REPORT INFORMATION
  Report Type: 
  Country: None (occurrence: None)
  Receive Date: 20100120
  Receipt Date: 20100108
  Transmission Date: 20100710
  Serious: Yes (Hospitalization)
  Sender: FDA-Public Use
  Company Number: CA-BAYER-201010882NA

PATIENT
  Age: 31 Year
  Sex: Female

DRUGS (1)
  1. MIRENA [Suspect]
     Indication: CONTRACEPTION
     Dosage: CONTINUOUS
     Route: 015
     Dates: start: 20090401, end: 20100113

REACTIONS (9)
  - ACNE [None]
  - AMENORRHOEA [None]
  - ANXIETY [None]
  - DEPRESSION [None]
  - DYSPAREUNIA [None]
  - NERVOUSNESS [None]
  - PANIC ATTACK [None]
  - PROCEDURAL PAIN [None]
  - VAGINAL HAEMORRHAGE [None]
